FAERS Safety Report 10340758 (Version 3)
Quarter: 2014Q3

REPORT INFORMATION
  Report Type: Spontaneous
  Country: FR (occurrence: None)
  Receive Date: 20140722
  Receipt Date: 20140821
  Transmission Date: 20150326
  Serious: Yes (Other)
  Sender: FDA-Public Use
  Company Number: IMP_07735_2014

PATIENT
  Age: 2 Day
  Sex: Male

DRUGS (1)
  1. CLONIDINE (CLONIDINE) [Suspect]
     Active Substance: CLONIDINE
     Indication: EXPOSURE DURING BREAST FEEDING
     Dosage: 0.15 MG, DAILY TRANSMAMMARY, 1 WEEK 2 DAY UNTIL NOT CONTINUING
     Route: 063

REACTIONS (11)
  - Toxicity to various agents [None]
  - Cyanosis [None]
  - Caesarean section [None]
  - Foetal exposure during pregnancy [None]
  - Hypotonia neonatal [None]
  - Maternal drugs affecting foetus [None]
  - Depressed level of consciousness [None]
  - Convulsion [None]
  - Exposure during breast feeding [None]
  - Hypoglycaemia neonatal [None]
  - Apnoea neonatal [None]
